FAERS Safety Report 8225404-0 (Version None)
Quarter: 2012Q1

REPORT INFORMATION
  Report Type: 
  Country: None (occurrence: None)
  Receive Date: 20120321
  Receipt Date: 20120312
  Transmission Date: 20120608
  Serious: Yes (Hospitalization)
  Sender: FDA-Public Use
  Company Number: GB-MEDIMMUNE-MEDI-0015092

PATIENT
  Sex: Female
  Weight: 6 kg

DRUGS (6)
  1. SODIUM FEREDETATE [Concomitant]
     Route: 048
  2. SYNAGIS [Suspect]
  3. SPIRONOLACTONE [Concomitant]
     Route: 048
  4. SYNAGIS [Suspect]
  5. CHLORTHIAZIDE TAB [Concomitant]
     Route: 048
  6. KAPSOVIT [Concomitant]
     Route: 048

REACTIONS (1)
  - BRONCHIOLITIS [None]
